FAERS Safety Report 9494468 (Version 1)
Quarter: 2013Q3

REPORT INFORMATION
  Report Type: Spontaneous
  Country: US (occurrence: None)
  Receive Date: 20130830
  Receipt Date: 20130830
  Transmission Date: 20140515
  Serious: No
  Sender: FDA-Public Use
  Company Number: None

PATIENT
  Age: 85 Year
  Sex: Female
  Weight: 74.84 kg

DRUGS (1)
  1. LOZENGES [Suspect]
     Indication: THROAT IRRITATION
     Dosage: 2 DISCS 2G/0.1 OZ AS NEEDED DISSOLVE IN MOUTH
     Route: 048
     Dates: start: 20130823, end: 20130823

REACTIONS (4)
  - Stomatitis [None]
  - Throat irritation [None]
  - Throat irritation [None]
  - Oral discomfort [None]
